FAERS Safety Report 7078353-8 (Version None)
Quarter: 2010Q4

REPORT INFORMATION
  Report Type: 
  Country: None (occurrence: None)
  Receive Date: 20101102
  Receipt Date: 20101026
  Transmission Date: 20110411
  Serious: Yes (Hospitalization, Other)
  Sender: FDA-Public Use
  Company Number: US-BAYER-201038684NA

PATIENT
  Age: 54 Year
  Sex: Female

DRUGS (3)
  1. BETASERON [Suspect]
     Indication: RELAPSING-REMITTING MULTIPLE SCLEROSIS
     Dosage: TOTAL DAILY DOSE: 8 MIU
     Route: 058
     Dates: start: 20101025
  2. BETASERON [Suspect]
     Route: 058
     Dates: start: 20101015, end: 20101021
  3. BETASERON [Suspect]
     Route: 058
     Dates: start: 20100804, end: 20101009

REACTIONS (6)
  - ASTHENIA [None]
  - COLD SWEAT [None]
  - FEELING HOT [None]
  - LOSS OF CONSCIOUSNESS [None]
  - PALPITATIONS [None]
  - PYREXIA [None]
